FAERS Safety Report 11488641 (Version 2)
Quarter: 2017Q3

REPORT INFORMATION
  Report Type: Spontaneous
  Country: US (occurrence: US)
  Receive Date: 20150910
  Receipt Date: 20170817
  Transmission Date: 20171127
  Serious: Yes (Other)
  Sender: FDA-Public Use
  Company Number: US-ROCHE-1568706

PATIENT
  Age: 60 Year
  Sex: Female
  Weight: 167 kg

DRUGS (4)
  1. VENOFER (UNITED STATES) [Concomitant]
     Indication: TRANSFERRIN SATURATION DECREASED
     Route: 042
     Dates: start: 20150414
  2. VENOFER (UNITED STATES) [Concomitant]
     Indication: SERUM FERRITIN DECREASED
  3. MIRCERA [Suspect]
     Active Substance: METHOXY POLYETHYLENE GLYCOL-EPOETIN BETA
     Indication: HAEMOGLOBIN DECREASED
     Route: 042
     Dates: start: 20150421, end: 20150421
  4. EPOGEN [Concomitant]
     Active Substance: ERYTHROPOIETIN
     Route: 065
     Dates: start: 20150324, end: 20150414

REACTIONS (3)
  - Pruritus [Recovered/Resolved]
  - Rash [Recovered/Resolved]
  - Urticaria [Recovered/Resolved]

NARRATIVE: CASE EVENT DATE: 20150421
